FAERS Safety Report 25807801 (Version 3)
Quarter: 2025Q4

REPORT INFORMATION
  Report Type: Spontaneous
  Country: BR (occurrence: BR)
  Receive Date: 20250916
  Receipt Date: 20251010
  Transmission Date: 20260118
  Serious: Yes (Death, Hospitalization, Other)
  Sender: PFIZER
  Company Number: BR-PFIZER INC-PV202500111267

PATIENT
  Age: 62 Year
  Sex: Male

DRUGS (2)
  1. TALIGLUCERASE ALFA [Suspect]
     Active Substance: TALIGLUCERASE ALFA
     Indication: Gaucher^s disease
     Dosage: 10 VIALS EVERY 15 DAYS
     Route: 042
     Dates: start: 20230213, end: 20250909
  2. DIAZEPAM [Concomitant]
     Active Substance: DIAZEPAM

REACTIONS (11)
  - Cholelithiasis [Fatal]
  - Haematemesis [Fatal]
  - Back pain [Fatal]
  - Oedema peripheral [Fatal]
  - Respiratory distress [Fatal]
  - Chromaturia [Fatal]
  - Cholangitis [Unknown]
  - Jaundice [Unknown]
  - Asthenia [Unknown]
  - Abdominal distension [Unknown]
  - Abdominal tenderness [Unknown]

NARRATIVE: CASE EVENT DATE: 20250901
